FAERS Safety Report 6925979-5 (Version None)
Quarter: 2010Q3

REPORT INFORMATION
  Report Type: 
  Country: None (occurrence: None)
  Receive Date: 20100813
  Receipt Date: 20100813
  Transmission Date: 20110219
  Serious: No
  Sender: FDA-Public Use
  Company Number: None

PATIENT
  Age: 18 Year
  Sex: Female

DRUGS (3)
  1. MICROGESTIN FE 1/20 [Suspect]
     Dosage: ONCE A DAY ORALLY DAYS
     Route: 048
  2. CELEXA [Concomitant]
  3. ADDERALL 10 [Concomitant]

REACTIONS (5)
  - ABNORMAL BEHAVIOUR [None]
  - FATIGUE [None]
  - NAUSEA [None]
  - SLEEP DISORDER [None]
  - VISION BLURRED [None]
